FAERS Safety Report 8919829 (Version 1)
Quarter: 2012Q4

REPORT INFORMATION
  Report Type: Spontaneous
  Country: US (occurrence: None)
  Receive Date: 20121114
  Receipt Date: 20121114
  Transmission Date: 20130627
  Serious: Yes (Other)
  Sender: FDA-Public Use
  Company Number: 2012-CA-0016

PATIENT
  Age: 30 Year
  Sex: Male

DRUGS (2)
  1. ABSTRAL [Suspect]
     Indication: PAIN
  2. ABSTRAL [Suspect]
     Indication: OFF LABEL USE

REACTIONS (2)
  - Drug abuse [None]
  - Off label use [None]
